FAERS Safety Report 10077657 (Version 1)
Quarter: 2014Q2

REPORT INFORMATION
  Report Type: Spontaneous
  Country: US (occurrence: US)
  Receive Date: 20140414
  Receipt Date: 20140414
  Transmission Date: 20141212
  Serious: No
  Sender: FDA-Public Use
  Company Number: US-BANPHARM-20142078

PATIENT
  Age: 66 Year
  Sex: Male

DRUGS (3)
  1. NAPROXEN SODIUM 220 MG [Suspect]
     Indication: PAIN
     Dosage: 220 MG, QD,
     Route: 048
     Dates: start: 20140116, end: 20140121
  2. NAPROXEN SODIUM 220 MG [Suspect]
     Indication: PAIN
     Dosage: 1 DF, QD,
     Route: 048
     Dates: start: 20140123
  3. OMEPRAZOLE [Concomitant]

REACTIONS (1)
  - Abdominal discomfort [Recovered/Resolved]
